FAERS Safety Report 8196815-7 (Version None)
Quarter: 2012Q1

REPORT INFORMATION
  Report Type: 
  Country: None (occurrence: None)
  Receive Date: 20120309
  Receipt Date: 20120307
  Transmission Date: 20120608
  Serious: Yes (Hospitalization, Other)
  Sender: FDA-Public Use
  Company Number: JP-PFIZER INC-2012023941

PATIENT
  Age: 47 Year
  Sex: Female

DRUGS (3)
  1. ACETAMINOPHEN [Concomitant]
     Dosage: UNK
  2. LYRICA [Suspect]
     Indication: NERVE COMPRESSION
     Dosage: 150 MG/DAY
     Route: 048
  3. VOLTAREN [Concomitant]
     Dosage: UNK

REACTIONS (3)
  - VISUAL ACUITY REDUCED [None]
  - STRABISMUS [None]
  - NEURALGIA [None]
